FAERS Safety Report 26021665 (Version 1)
Quarter: 2025Q4

REPORT INFORMATION
  Report Type: Spontaneous
  Country: CA (occurrence: CA)
  Receive Date: 20251110
  Receipt Date: 20251110
  Transmission Date: 20260117
  Serious: Yes (Other)
  Sender: CSL BEHRING
  Company Number: CA-BEH-2025224277

PATIENT
  Sex: Male

DRUGS (2)
  1. PRIVIGEN [Suspect]
     Active Substance: HUMAN IMMUNOGLOBULIN G
     Dosage: 68 ML
     Dates: start: 20251022, end: 20251022
  2. PRIVIGEN [Suspect]
     Active Substance: HUMAN IMMUNOGLOBULIN G
     Dosage: 50 ML
     Dates: start: 20251022, end: 20251022

REACTIONS (6)
  - Transfusion-related circulatory overload [Unknown]
  - Cold sweat [Unknown]
  - Pallor [Unknown]
  - Chills [Unknown]
  - Dyspnoea [Unknown]
  - Tachypnoea [Unknown]

NARRATIVE: CASE EVENT DATE: 20251022
